FAERS Safety Report 6737383-3 (Version None)
Quarter: 2010Q2

REPORT INFORMATION
  Report Type: 
  Country: None (occurrence: None)
  Receive Date: 20100524
  Receipt Date: 20100517
  Transmission Date: 20101027
  Serious: Yes (Hospitalization)
  Sender: FDA-Public Use
  Company Number: US-JNJFOC-20100203512

PATIENT
  Age: 84 Year
  Sex: Female
  Weight: 64.41 kg

DRUGS (2)
  1. TYLENOL [Suspect]
  2. TYLENOL [Suspect]
     Indication: ARTHRALGIA
     Dosage: ONE DOSE ONCE A DAY OR AS NEEDED, FOR TWO WEEKS

REACTIONS (3)
  - COLITIS [None]
  - DIZZINESS [None]
  - PRODUCT QUALITY ISSUE [None]
